FAERS Safety Report 11648298 (Version 1)
Quarter: 2015Q4

REPORT INFORMATION
  Report Type: Spontaneous
  Country: US (occurrence: None)
  Receive Date: 20151020
  Receipt Date: 20151020
  Transmission Date: 20160304
  Serious: No
  Sender: FDA-Public Use
  Company Number: None

PATIENT
  Age: 63 Year
  Sex: Male

DRUGS (1)
  1. STELARA [Suspect]
     Active Substance: USTEKINUMAB
     Indication: PSORIASIS
     Dosage: Q12 WEEKS, SQ
     Dates: start: 20141217, end: 20150501

REACTIONS (4)
  - Infection [None]
  - Therapy cessation [None]
  - Disease complication [None]
  - Myocardial infarction [None]

NARRATIVE: CASE EVENT DATE: 20150501
